FAERS Safety Report 6600497-2 (Version None)
Quarter: 2010Q1

REPORT INFORMATION
  Report Type: 
  Country: None (occurrence: None)
  Receive Date: 20100223
  Receipt Date: 20100223
  Transmission Date: 20100710
  Serious: Yes (Other)
  Sender: FDA-Public Use
  Company Number: None

PATIENT
  Age: 56 Year
  Sex: Female
  Weight: 72 kg

DRUGS (2)
  1. VIBATIV [Suspect]
     Indication: OSTEOMYELITIS
     Dosage: 700 MG Q 24 HRS IV
     Route: 042
     Dates: start: 20100215, end: 20100215
  2. VIBATIV [Suspect]
     Indication: STAPHYLOCOCCAL INFECTION
     Dosage: 700 MG Q 24 HRS IV
     Route: 042
     Dates: start: 20100215, end: 20100215

REACTIONS (3)
  - CHEST DISCOMFORT [None]
  - FEELING ABNORMAL [None]
  - INFUSION RELATED REACTION [None]
